FAERS Safety Report 10190982 (Version 1)
Quarter: 2014Q2

REPORT INFORMATION
  Report Type: Spontaneous
  Country: US (occurrence: US)
  Receive Date: 20140523
  Receipt Date: 20140523
  Transmission Date: 20141212
  Serious: Yes (Other)
  Sender: FDA-Public Use
  Company Number: US-JNJFOC-20140509174

PATIENT
  Age: 65 Year
  Sex: Female

DRUGS (11)
  1. XARELTO [Suspect]
     Indication: CEREBROVASCULAR ACCIDENT PROPHYLAXIS
     Route: 048
  2. XARELTO [Suspect]
     Indication: ATRIAL FIBRILLATION
     Route: 048
  3. TYLENOL [Concomitant]
     Route: 065
  4. ALDACTONE [Concomitant]
     Route: 065
  5. AMIODARONE [Concomitant]
     Route: 065
  6. CARVEDILOL [Concomitant]
     Route: 065
  7. LANOXIN [Concomitant]
     Route: 065
  8. LASIX [Concomitant]
     Route: 065
  9. LEVOTHYROXINE [Concomitant]
     Indication: HYPOTHYROIDISM
     Route: 065
  10. LISINOPRIL [Concomitant]
     Indication: HYPERTENSION
     Route: 065
  11. PRAVASTATIN [Concomitant]
     Indication: HYPERCHOLESTEROLAEMIA
     Route: 065

REACTIONS (1)
  - Breast cancer [Unknown]
